FAERS Safety Report 8166803-5 (Version None)
Quarter: 2012Q1

REPORT INFORMATION
  Report Type: 
  Country: None (occurrence: None)
  Receive Date: 20120221
  Receipt Date: 20120109
  Transmission Date: 20120608
  Serious: Yes (Hospitalization)
  Sender: FDA-Public Use
  Company Number: COL_10706_2012

PATIENT
  Age: 40 Year
  Sex: Male

DRUGS (2)
  1. SOFT SOAP BODY WASH, HOLIDAY MOLTEN CHOCOLATE [Suspect]
     Dosage: (NI/ONCE/TOPICAL)
     Route: 061
     Dates: start: 20111203, end: 20111203
  2. SOFT SOAP BODY WASH, HOLIDAY MOLTEN CHOCOLATE [Suspect]
     Dosage: (NI/ONCE/TOPICAL)
     Route: 061
     Dates: start: 20120106, end: 20120106

REACTIONS (2)
  - DRUG HYPERSENSITIVITY [None]
  - URTICARIA [None]
